FAERS Safety Report 9325847 (Version 1)
Quarter: 2013Q2

REPORT INFORMATION
  Report Type: Spontaneous
  Country: US (occurrence: US)
  Receive Date: 20130604
  Receipt Date: 20130604
  Transmission Date: 20140414
  Serious: Yes (Other)
  Sender: FDA-Public Use
  Company Number: US-JNJFOC-20130513874

PATIENT
  Age: 52 Year
  Sex: Male

DRUGS (8)
  1. DOXORUBICIN [Suspect]
     Indication: BURKITT^S LYMPHOMA
     Route: 042
  2. CYCLOPHOSPHAMIDE [Suspect]
     Indication: BURKITT^S LYMPHOMA
     Route: 065
  3. VINCRISTINE [Suspect]
     Indication: BURKITT^S LYMPHOMA
     Route: 065
  4. METHOTREXATE [Suspect]
     Indication: BURKITT^S LYMPHOMA
     Route: 065
  5. IFOSFAMIDE [Suspect]
     Indication: BURKITT^S LYMPHOMA
     Route: 065
  6. ETOPOSIDE [Suspect]
     Indication: BURKITT^S LYMPHOMA
     Route: 065
  7. CYTARABINE [Suspect]
     Indication: BURKITT^S LYMPHOMA
     Route: 065
  8. RITUXIMAB [Suspect]
     Indication: BURKITT^S LYMPHOMA
     Route: 065

REACTIONS (5)
  - Mycobacterial infection [Recovered/Resolved]
  - Device related infection [Recovered/Resolved]
  - Pyrexia [Recovered/Resolved]
  - Neutropenia [Recovered/Resolved]
  - Off label use [Unknown]
